FAERS Safety Report 20120285 (Version 1)
Quarter: 2021Q4

REPORT INFORMATION
  Report Type: Spontaneous
  Country: US (occurrence: None)
  Receive Date: 20211126
  Receipt Date: 20211126
  Transmission Date: 20220303
  Serious: Yes (Disabling)
  Sender: FDA-Public Use
  Company Number: None

PATIENT
  Age: 41 Year
  Sex: Female

DRUGS (1)
  1. NEXPLANON [Suspect]
     Active Substance: ETONOGESTREL
     Dates: start: 20210101

REACTIONS (7)
  - Menometrorrhagia [None]
  - Abdominal distension [None]
  - Major depression [None]
  - Psychotic disorder [None]
  - Mania [None]
  - Panic attack [None]
  - Loss of employment [None]

NARRATIVE: CASE EVENT DATE: 20211115
